FAERS Safety Report 6355063-3 (Version None)
Quarter: 2009Q3

REPORT INFORMATION
  Report Type: 
  Country: None (occurrence: None)
  Receive Date: 20090914
  Receipt Date: 20090908
  Transmission Date: 20100115
  Serious: Yes (Disabling)
  Sender: FDA-Public Use
  Company Number: BE-NAPPMUNDI-GBR-2009-0005544

PATIENT
  Sex: Female

DRUGS (1)
  1. OXYCONTIN [Suspect]
     Indication: PAIN
     Dosage: 5 MG, NOCTE
     Route: 048
     Dates: start: 20090101

REACTIONS (2)
  - DYSPHAGIA [None]
  - PARESIS [None]
